FAERS Safety Report 9034654 (Version 1)
Quarter: 2013Q1

REPORT INFORMATION
  Report Type: Spontaneous
  Country: US (occurrence: US)
  Receive Date: 20130128
  Receipt Date: 20130128
  Transmission Date: 20140127
  Serious: Yes (Death)
  Sender: FDA-Public Use
  Company Number: US-GLAXOSMITHKLINE-A1009743A

PATIENT
  Age: 77 Year
  Sex: Male

DRUGS (8)
  1. VOTRIENT [Suspect]
     Indication: PRODUCT USED FOR UNKNOWN INDICATION
     Dosage: 800MG PER DAY
     Route: 048
     Dates: start: 20121129
  2. COREG [Concomitant]
  3. ASA [Concomitant]
  4. ADVIL [Concomitant]
  5. PREDNISONE [Concomitant]
  6. GABAPENTIN [Concomitant]
  7. MOM [Concomitant]
  8. PHENTERMINE HYDROCHLORIDE [Concomitant]

REACTIONS (1)
  - Death [Fatal]
